FAERS Safety Report 5179536-4 (Version None)
Quarter: 2006Q4

REPORT INFORMATION
  Report Type: 
  Country: None (occurrence: None)
  Receive Date: 20061219
  Receipt Date: 20061212
  Transmission Date: 20070319
  Serious: Yes (Other)
  Sender: FDA-Public Use
  Company Number: GB-ELI_LILLY_AND_COMPANY-GB200612002040

PATIENT
  Age: 75 Year
  Sex: Female

DRUGS (4)
  1. HUMALOG [Suspect]
     Indication: DIABETES MELLITUS
     Dosage: 6 U, 3/D
  2. LANTUS [Concomitant]
     Indication: DIABETES MELLITUS
     Dosage: 16 U, EACH EVENING
  3. FLECAINIDE ACETATE [Concomitant]
     Indication: CARDIAC DISORDER
  4. ATENOLOL [Concomitant]
     Indication: HYPERTENSION

REACTIONS (4)
  - BLOOD GLUCOSE FLUCTUATION [None]
  - CARDIAC DISORDER [None]
  - DEVICE FAILURE [None]
  - PHARMACEUTICAL PRODUCT COMPLAINT [None]
